FAERS Safety Report 16007367 (Version 1)
Quarter: 2019Q1

REPORT INFORMATION
  Report Type: Report from Study
  Country: US (occurrence: US)
  Receive Date: 20190226
  Receipt Date: 20190226
  Transmission Date: 20190418
  Serious: Yes (Other)
  Sender: FDA-Public Use
  Company Number: US-GILEAD-2019-0392612

PATIENT
  Age: 70 Year
  Sex: Male

DRUGS (8)
  1. BYSTOLIC [Concomitant]
     Active Substance: NEBIVOLOL HYDROCHLORIDE
     Dosage: 5MG TABLET BY MOUTH DAILY.
  2. FENOFIBRATE. [Concomitant]
     Active Substance: FENOFIBRATE
     Dosage: 145MG TABLET BY MOUTH DAILY AT BEDTIME.
  3. CLOPIDOGREL [Concomitant]
     Active Substance: CLOPIDOGREL BISULFATE
     Dosage: 75MG TABLET BY MOUTH DAILY.
     Dates: start: 201604
  4. IDELALISIB [Suspect]
     Active Substance: IDELALISIB
     Dosage: 100 MG, BID
     Route: 048
     Dates: start: 20150212
  5. SIMVASTATIN. [Concomitant]
     Active Substance: SIMVASTATIN
     Dosage: 80MG TABLET BY MOUTH DAILY.
  6. IDELALISIB [Suspect]
     Active Substance: IDELALISIB
     Indication: CHRONIC LYMPHOCYTIC LEUKAEMIA
     Dosage: 100 MG, BID
     Route: 048
     Dates: start: 20150212, end: 20181005
  7. SPIRONOLACTONE. [Concomitant]
     Active Substance: SPIRONOLACTONE
     Dosage: 25MG TABLET BY MOUTH DAILY.
  8. IGG [Concomitant]
     Active Substance: HUMAN IMMUNOGLOBULIN G
     Dosage: NOT PROVIDED, INTRAVENOUS INFUSION MONTHLY.
     Dates: start: 201902

REACTIONS (3)
  - Skin cancer [Not Recovered/Not Resolved]
  - Appetite disorder [Not Recovered/Not Resolved]
  - Weight decreased [Not Recovered/Not Resolved]

NARRATIVE: CASE EVENT DATE: 20150212
